FAERS Safety Report 15148410 (Version 3)
Quarter: 2018Q3

REPORT INFORMATION
  Report Type: Report from Study
  Country: KR (occurrence: KR)
  Receive Date: 20180716
  Receipt Date: 20180817
  Transmission Date: 20181010
  Serious: Yes (Hospitalization, Other)
  Sender: FDA-Public Use
  Company Number: KR-IPSEN BIOPHARMACEUTICALS, INC.-2018-10236

PATIENT
  Age: 68 Year
  Sex: Male
  Weight: 53 kg

DRUGS (5)
  1. ONIVYDE [Suspect]
     Active Substance: IRINOTECAN HYDROCHLORIDE
     Indication: PANCREATIC CARCINOMA METASTATIC
     Dosage: 110.6 MG
     Route: 042
     Dates: start: 20180416, end: 20180416
  2. FLUOROURACIL. [Suspect]
     Active Substance: FLUOROURACIL
     Indication: PANCREATIC CARCINOMA METASTATIC
     Dosage: 1896 MG
     Route: 042
     Dates: start: 20180416, end: 20180416
  3. LEVOFOLIC [Suspect]
     Active Substance: LEUCOVORIN
     Indication: PANCREATIC CARCINOMA METASTATIC
     Dosage: 316 MG
     Route: 042
     Dates: start: 20180416, end: 20180416
  4. NEURONTIN [Concomitant]
     Active Substance: GABAPENTIN
  5. HUMULIN R [Concomitant]
     Active Substance: INSULIN HUMAN

REACTIONS (5)
  - Ascites [Recovered/Resolved]
  - Device leakage [Unknown]
  - Condition aggravated [Recovered/Resolved]
  - Hyperkalaemia [Recovered/Resolved]
  - Hyponatraemia [Recovered/Resolved]

NARRATIVE: CASE EVENT DATE: 20180526
